FAERS Safety Report 6204161-3 (Version None)
Quarter: 2009Q2

REPORT INFORMATION
  Report Type: 
  Country: None (occurrence: None)
  Receive Date: 20090527
  Receipt Date: 20090429
  Transmission Date: 20091009
  Serious: No
  Sender: FDA-Public Use
  Company Number: US-BAYER-200919630NA

PATIENT
  Age: 47 Year
  Sex: Female

DRUGS (1)
  1. MAGNEVIST [Suspect]
     Indication: VISUAL IMPAIRMENT
     Dosage: AS USED: 10 ML  UNIT DOSE: 50 ML
     Route: 042
     Dates: start: 20090429, end: 20090429

REACTIONS (3)
  - FEELING HOT [None]
  - FORMICATION [None]
  - URTICARIA [None]
